FAERS Safety Report 13833822 (Version 2)
Quarter: 2017Q3

REPORT INFORMATION
  Report Type: Spontaneous
  Country: DK (occurrence: DK)
  Receive Date: 20170804
  Receipt Date: 20170828
  Transmission Date: 20171127
  Serious: Yes (Life-Threatening)
  Sender: FDA-Public Use
  Company Number: DK-LPDUSPRD-20171092

PATIENT
  Age: 33 Year
  Sex: Female

DRUGS (2)
  1. VIBEDEN [Concomitant]
     Dosage: UNKNOWN
     Route: 065
  2. VENOFER [Suspect]
     Active Substance: IRON SUCROSE
     Dosage: 1000 MG, 3 TOTAL DOSES
     Route: 041
     Dates: start: 20170714, end: 20170714

REACTIONS (5)
  - Anaphylactic reaction [Unknown]
  - Overdose [Unknown]
  - Exposure during pregnancy [Unknown]
  - Caesarean section [Unknown]
  - Incorrect drug administration rate [Unknown]

NARRATIVE: CASE EVENT DATE: 20170714
